FAERS Safety Report 10280323 (Version 3)
Quarter: 2014Q3

REPORT INFORMATION
  Report Type: Spontaneous
  Country: CH (occurrence: CH)
  Receive Date: 20140707
  Receipt Date: 20140908
  Transmission Date: 20150326
  Serious: Yes (Other)
  Sender: FDA-Public Use
  Company Number: CH-ELI_LILLY_AND_COMPANY-CH201406009052

PATIENT
  Age: 15 Year
  Sex: Male

DRUGS (4)
  1. FLUCTINE [Suspect]
     Active Substance: FLUOXETINE HYDROCHLORIDE
     Indication: DEPRESSION
     Dosage: 10 MG, QD
     Route: 048
     Dates: start: 201401
  2. FLUCTINE [Suspect]
     Active Substance: FLUOXETINE HYDROCHLORIDE
     Dosage: 20 MG, QD
     Route: 048
     Dates: start: 201402
  3. FLUCTINE [Suspect]
     Active Substance: FLUOXETINE HYDROCHLORIDE
     Dosage: 10 MG, QD
     Route: 048
     Dates: start: 20140604, end: 20140606
  4. ACETAZOLAMIDE. [Concomitant]
     Active Substance: ACETAZOLAMIDE
     Indication: INTRACRANIAL PRESSURE INCREASED
     Dosage: 250 MG, TID
     Route: 048
     Dates: start: 20131104, end: 20140304

REACTIONS (11)
  - Disorientation [Recovering/Resolving]
  - Drug ineffective [Unknown]
  - Nightmare [Recovered/Resolved]
  - Fatigue [Not Recovered/Not Resolved]
  - Hypersomnia-bulimia syndrome [Recovering/Resolving]
  - Altered state of consciousness [Recovering/Resolving]
  - Drug withdrawal syndrome [Unknown]
  - Blood lead increased [Unknown]
  - Nervousness [Unknown]
  - Psychotic disorder [Recovering/Resolving]
  - Somnambulism [Recovering/Resolving]

NARRATIVE: CASE EVENT DATE: 20140520
